FAERS Safety Report 20922609 (Version 1)
Quarter: 2022Q2

REPORT INFORMATION
  Report Type: Spontaneous
  Country: US (occurrence: US)
  Receive Date: 20220607
  Receipt Date: 20220607
  Transmission Date: 20220720
  Serious: Yes (Other)
  Sender: FDA-Public Use
  Company Number: US-BRISTOL-MYERS SQUIBB COMPANY-2022-047551

PATIENT
  Age: 60 Year
  Sex: Male
  Weight: 131.54 kg

DRUGS (1)
  1. REVLIMID [Suspect]
     Active Substance: LENALIDOMIDE
     Indication: Plasma cell myeloma
     Dosage: DAY 1-28 Q 28 DAYS
     Route: 048
     Dates: start: 20210821

REACTIONS (2)
  - Neuropathy peripheral [Unknown]
  - Off label use [Unknown]
